FAERS Safety Report 7210322-7 (Version None)
Quarter: 2011Q1

REPORT INFORMATION
  Report Type: 
  Country: None (occurrence: None)
  Receive Date: 20110103
  Receipt Date: 20110103
  Transmission Date: 20110831
  Serious: No
  Sender: FDA-Public Use
  Company Number: None

PATIENT
  Sex: Female
  Weight: 43.5 kg

DRUGS (4)
  1. METHOTREXATE [Suspect]
     Dosage: 30 MG
     Dates: end: 20101227
  2. CYTARABINE [Suspect]
     Dosage: 500 MG
     Dates: end: 20101227
  3. MERCAPTOPURINE [Suspect]
     Dosage: 575 MG
     Dates: end: 20101226
  4. CYCLOPHOSPHAMIDE [Suspect]
     Dosage: 1350 MG
     Dates: end: 20101220

REACTIONS (1)
  - HYPERBILIRUBINAEMIA [None]
